FAERS Safety Report 12328453 (Version 1)
Quarter: 2016Q2

REPORT INFORMATION
  Report Type: Spontaneous
  Country: US (occurrence: US)
  Receive Date: 20160503
  Receipt Date: 20160503
  Transmission Date: 20160815
  Serious: No
  Sender: FDA-Public Use
  Company Number: US-BEH-2014047630

PATIENT
  Sex: Male
  Weight: 7 kg

DRUGS (12)
  1. L-M-X [Concomitant]
  2. CALCITRIOL. [Concomitant]
     Active Substance: CALCITRIOL
     Dosage: 1 MCG/ML SOLUTION
  3. FUROSEMIDE. [Concomitant]
     Active Substance: FUROSEMIDE
     Dosage: 10 MG/ML SOLUTION
  4. IPRATROPIUM BR [Concomitant]
     Dosage: 0.02% SOLN
  5. FLUCONAZOLE. [Concomitant]
     Active Substance: FLUCONAZOLE
     Dosage: 10 MG/ML SUSP
  6. HIZENTRA [Suspect]
     Active Substance: HUMAN IMMUNOGLOBULIN G
     Indication: DIGEORGE^S SYNDROME
     Dosage: ??-NOV-2013
     Route: 058
  7. AZITHROMYCIN ANHYDROUS. [Concomitant]
     Active Substance: AZITHROMYCIN ANHYDROUS
     Dosage: 100 MG/ML SUSP
  8. EPI-PEN JR AUTOINJECTOR [Concomitant]
  9. AMLODIPINE BESYLATE. [Concomitant]
     Active Substance: AMLODIPINE BESYLATE
  10. CEFDINIR. [Concomitant]
     Active Substance: CEFDINIR
     Dosage: 125 MG/ML SUSP
  11. KEPPRA [Concomitant]
     Active Substance: LEVETIRACETAM
     Dosage: 100 MG/ML ORAL SOLN
  12. MEPRON [Concomitant]
     Active Substance: ATOVAQUONE
     Dosage: 750 MG/5 ML SUSPENSION

REACTIONS (1)
  - Infusion site erythema [Recovered/Resolved]
